FAERS Safety Report 9970125 (Version 1)
Quarter: 2014Q1

REPORT INFORMATION
  Report Type: Spontaneous
  Country: US (occurrence: None)
  Receive Date: 20140214
  Receipt Date: 20140214
  Transmission Date: 20141002
  Serious: Yes (Other)
  Sender: FDA-Public Use
  Company Number: CO-OR-US-2013-190

PATIENT
  Sex: 0

DRUGS (1)
  1. PREDNISOLONE (PREDNISOLONE) [Suspect]
     Indication: INFANTILE SPASMS
     Dosage: 8MG/KG/DAY DIVIDED TID, WITH A MAX DOSE OF 60 MG/DAY

REACTIONS (2)
  - Drug ineffective [None]
  - Off label use [None]
